FAERS Safety Report 16531631 (Version 2)
Quarter: 2019Q3

REPORT INFORMATION
  Report Type: Report from Study
  Country: CA (occurrence: CA)
  Receive Date: 20190705
  Receipt Date: 20190819
  Transmission Date: 20191004
  Serious: Yes (Other)
  Sender: FDA-Public Use
  Company Number: CA-PFIZER INC-2019253193

PATIENT
  Age: 47 Year
  Sex: Female

DRUGS (13)
  1. ENTYVIO [Suspect]
     Active Substance: VEDOLIZUMAB
     Dosage: 300 MILLIGRAM, Q4WEEKS
     Route: 042
     Dates: start: 20180620
  2. PROSACEA [Concomitant]
     Active Substance: SULFUR
     Dosage: 40 MILLIGRAM, QD
  3. ENTYVIO [Suspect]
     Active Substance: VEDOLIZUMAB
     Dosage: 300 MG, EVERY 3 WEEKS
     Route: 042
     Dates: start: 20190626
  4. ADALAT [Concomitant]
     Active Substance: NIFEDIPINE
     Indication: REYNOLD^S SYNDROME
     Dosage: 20 MILLIGRAM S UNK
  5. TECTA [Suspect]
     Active Substance: PANTOPRAZOLE MAGNESIUM
     Indication: GASTROOESOPHAGEAL REFLUX DISEASE
     Dosage: 20 MILLIGRAM
     Route: 065
     Dates: start: 2012
  6. ENTYVIO [Suspect]
     Active Substance: VEDOLIZUMAB
     Indication: CROHN^S DISEASE
     Dosage: 300 MILLIGRAM
     Route: 042
     Dates: start: 20170828
  7. LORAZEPAM. [Concomitant]
     Active Substance: LORAZEPAM
     Indication: ANXIETY
     Dosage: UNK
  8. ZOFRAN [Concomitant]
     Active Substance: ONDANSETRON HYDROCHLORIDE
     Indication: NAUSEA
     Dosage: 8 MILLIGRAM
  9. MULTIVITAMINS [VITAMINS NOS] [Concomitant]
     Active Substance: VITAMINS
     Dosage: UNK
  10. ENTYVIO [Suspect]
     Active Substance: VEDOLIZUMAB
     Dosage: 300 MILLIGRAM
     Route: 042
  11. VENTOLIN [Concomitant]
     Active Substance: ALBUTEROL SULFATE
     Dosage: UNK
  12. CALCIUM D [CALCIUM CARBONATE;COLECALCIFEROL] [Concomitant]
     Dosage: UNK
  13. CARIPRAZINE HYDROCHLORIDE [Concomitant]
     Active Substance: CARIPRAZINE HYDROCHLORIDE
     Indication: HYPERSENSITIVITY
     Dosage: UNK

REACTIONS (2)
  - Crohn^s disease [Unknown]
  - Poor venous access [Unknown]

NARRATIVE: CASE EVENT DATE: 20190626
